FAERS Safety Report 6911580-6 (Version None)
Quarter: 2010Q3

REPORT INFORMATION
  Report Type: 
  Country: None (occurrence: None)
  Receive Date: 20100806
  Receipt Date: 20100727
  Transmission Date: 20110219
  Serious: Yes (Other)
  Sender: FDA-Public Use
  Company Number: FR-BAYER-201034270GPV

PATIENT
  Age: 35 Year
  Sex: Female

DRUGS (1)
  1. MIRENA [Suspect]
     Indication: PRODUCT USED FOR UNKNOWN INDICATION
     Route: 015
     Dates: start: 20070201, end: 20100302

REACTIONS (8)
  - ANXIETY [None]
  - DYSGEUSIA [None]
  - FATIGUE [None]
  - HYPERAESTHESIA [None]
  - LOSS OF LIBIDO [None]
  - SENSE OF OPPRESSION [None]
  - STRESS [None]
  - TEMPERATURE INTOLERANCE [None]
